FAERS Safety Report 14026213 (Version 1)
Quarter: 2017Q3

REPORT INFORMATION
  Report Type: Report from Study
  Country: DE (occurrence: DE)
  Receive Date: 20170929
  Receipt Date: 20170929
  Transmission Date: 20171128
  Serious: Yes (Hospitalization)
  Sender: FDA-Public Use
  Company Number: DE-BIOGEN-2017BI00441014

PATIENT
  Age: 26 Year
  Sex: Female

DRUGS (2)
  1. ZINBRYTA [Suspect]
     Active Substance: DACLIZUMAB
     Route: 058
  2. ZINBRYTA [Suspect]
     Active Substance: DACLIZUMAB
     Indication: MULTIPLE SCLEROSIS
     Route: 058
     Dates: start: 20170726, end: 20170826

REACTIONS (5)
  - Eye disorder [Recovered/Resolved]
  - Gastrointestinal disorder [Recovered/Resolved]
  - Food poisoning [Recovered/Resolved]
  - Depression [Not Recovered/Not Resolved]
  - Breath odour [Recovered/Resolved]

NARRATIVE: CASE EVENT DATE: 20170729
